FAERS Safety Report 10583782 (Version 4)
Quarter: 2015Q3

REPORT INFORMATION
  Report Type: Report from Study
  Country: JP (occurrence: JP)
  Receive Date: 20141114
  Receipt Date: 20150810
  Transmission Date: 20151125
  Serious: Yes (Death, Hospitalization)
  Sender: FDA-Public Use
  Company Number: JP-ELI_LILLY_AND_COMPANY-JP201411004519

PATIENT
  Age: 64 Year
  Sex: Male
  Weight: 57 kg

DRUGS (2)
  1. TADALAFIL [Suspect]
     Active Substance: TADALAFIL
     Indication: PULMONARY ARTERIAL HYPERTENSION
     Dosage: 10 MG, QD
     Route: 048
     Dates: start: 20141025, end: 20141028
  2. TADALAFIL [Suspect]
     Active Substance: TADALAFIL
     Dosage: 20 MG, QD
     Route: 048
     Dates: start: 20141029, end: 20141107

REACTIONS (1)
  - Acute kidney injury [Fatal]

NARRATIVE: CASE EVENT DATE: 20141101
